FAERS Safety Report 5215143-2 (Version None)
Quarter: 2006Q4

REPORT INFORMATION
  Report Type: 
  Country: None (occurrence: None)
  Receive Date: 20061107
  Receipt Date: 20060828
  Transmission Date: 20070319
  Serious: No
  Sender: FDA-Public Use
  Company Number: 200614361BWH

PATIENT
  Age: 55 Year
  Sex: Male

DRUGS (8)
  1. LEVITRA [Suspect]
     Indication: ERECTILE DYSFUNCTION
     Dosage: 20 MG, BIW, ORAL
     Route: 048
     Dates: start: 20030101, end: 20060101
  2. LOTREL [Concomitant]
  3. ACTOS [Concomitant]
  4. LEXAPRO [Concomitant]
  5. LIPITOR [Concomitant]
  6. MICARDIS [Concomitant]
  7. GLYBURIDE [Concomitant]
  8. INSULIN INJECTIONS [Concomitant]

REACTIONS (1)
  - ERECTILE DYSFUNCTION [None]
